FAERS Safety Report 4658570-4 (Version None)
Quarter: 2005Q2

REPORT INFORMATION
  Report Type: 
  Country: None (occurrence: None)
  Receive Date: 20050509
  Receipt Date: 20050429
  Transmission Date: 20051028
  Serious: Yes (Hospitalization, Other)
  Sender: FDA-Public Use
  Company Number: 2005044276

PATIENT
  Age: 78 Year
  Sex: Female

DRUGS (10)
  1. CELEBREX [Suspect]
     Indication: ARTHRITIS
     Dosage: 200 MG (200 MG, 1 IN 1 D)
     Dates: start: 20010101
  2. OXYBUTYNIN CHLORIDE [Suspect]
     Indication: HYPERTONIC BLADDER
     Dosage: 3.9 MG/HR (1 IN 2 WK), TRANSDERMAL
     Route: 062
     Dates: start: 20040824
  3. RAMIPRIL [Concomitant]
  4. HYDROCHLOROTHIAZIDE [Concomitant]
  5. ATORVASTATIN CALCIUM [Concomitant]
  6. VICODIN [Concomitant]
  7. ROSIGLITAZONE MALEATE [Concomitant]
  8. ASPIRIN [Concomitant]
  9. CALCIUM (CALCIUM) [Concomitant]
  10. PARACETMAOL (PARACETAMOL) [Concomitant]

REACTIONS (2)
  - GASTRIC ULCER HAEMORRHAGE [None]
  - MALAISE [None]
